FAERS Safety Report 12470733 (Version 1)
Quarter: 2016Q2

REPORT INFORMATION
  Report Type: Spontaneous
  Country: US (occurrence: US)
  Receive Date: 20160616
  Receipt Date: 20160616
  Transmission Date: 20160815
  Serious: Yes (Other)
  Sender: FDA-Public Use
  Company Number: US-APOTEX-2016AP009019

PATIENT
  Age: 32 Year
  Sex: Female

DRUGS (3)
  1. MEGESTROL ACETATE ORAL SUSPENSION USP [Suspect]
     Active Substance: MEGESTROL ACETATE
     Indication: ENDOMETRIAL CANCER
     Dosage: UNK
     Route: 065
  2. PROGESTERONE. [Suspect]
     Active Substance: PROGESTERONE
     Indication: ENDOMETRIAL CANCER
     Route: 050
  3. PROGESTERONE. [Suspect]
     Active Substance: PROGESTERONE
     Indication: ENDOMETRIAL CANCER
     Route: 050

REACTIONS (3)
  - Breast cancer [Unknown]
  - Abdominal pain [Unknown]
  - Nausea [Unknown]
